FAERS Safety Report 11468466 (Version 1)
Quarter: 2015Q3

REPORT INFORMATION
  Report Type: Spontaneous
  Country: US (occurrence: None)
  Receive Date: 20150904
  Receipt Date: 20150904
  Transmission Date: 20151125
  Serious: Yes (Disabling)
  Sender: FDA-Public Use
  Company Number: None

PATIENT
  Age: 22 Year
  Sex: Female
  Weight: 52.16 kg

DRUGS (1)
  1. MIRENA [Suspect]
     Active Substance: LEVONORGESTREL

REACTIONS (11)
  - Cervix disorder [None]
  - Cervicitis human papilloma virus [None]
  - Cervical dysplasia [None]
  - Fungal infection [None]
  - Embedded device [None]
  - Cervix carcinoma [None]
  - Vaginal haemorrhage [None]
  - Smear cervix abnormal [None]
  - Bacterial vaginosis [None]
  - Migraine [None]
  - Abdominal pain [None]
